APPROVED DRUG PRODUCT: CLARINEX-D 12 HOUR
Active Ingredient: DESLORATADINE; PSEUDOEPHEDRINE SULFATE
Strength: 2.5MG;120MG
Dosage Form/Route: TABLET, EXTENDED RELEASE;ORAL
Application: N021313 | Product #001
Applicant: ORGANON LLC
Approved: Feb 1, 2006 | RLD: Yes | RS: Yes | Type: RX